FAERS Safety Report 8959562 (Version 1)
Quarter: 2012Q4

REPORT INFORMATION
  Report Type: 
  Country: US (occurrence: US)
  Receive Date: 20121211
  Receipt Date: 20121211
  Transmission Date: 20130627
  Serious: Yes (Hospitalization, Other)
  Sender: FDA-Public Use
  Company Number: US-ELI_LILLY_AND_COMPANY-US201212000211

PATIENT
  Sex: Male

DRUGS (1)
  1. BYETTA [Suspect]
     Dosage: 5 ug, UNK
     Route: 058

REACTIONS (4)
  - Pulmonary embolism [Recovered/Resolved]
  - Rib fracture [Recovered/Resolved]
  - Wound [Unknown]
  - Fall [Recovered/Resolved]
